FAERS Safety Report 9027162 (Version 2)
Quarter: 2013Q1

REPORT INFORMATION
  Report Type: Report from Study
  Country: US (occurrence: US)
  Receive Date: 20130123
  Receipt Date: 20130128
  Transmission Date: 20140127
  Serious: Yes (Hospitalization, Other)
  Sender: FDA-Public Use
  Company Number: US-GLAXOSMITHKLINE-A1009238A

PATIENT
  Age: 48 Year
  Sex: Female
  Weight: 65.9 kg

DRUGS (2)
  1. LAPATINIB [Suspect]
     Indication: EPENDYMOMA
     Dosage: 1250MG PER DAY
     Route: 048
     Dates: start: 20121224
  2. TEMODAR [Suspect]
     Indication: EPENDYMOMA
     Dosage: 2200MG CYCLIC
     Route: 048

REACTIONS (1)
  - Pulmonary embolism [Unknown]
